FAERS Safety Report 4830116-7 (Version None)
Quarter: 2005Q4

REPORT INFORMATION
  Report Type: 
  Country: None (occurrence: None)
  Receive Date: 20051115
  Receipt Date: 20051115
  Transmission Date: 20060501
  Serious: Yes (Hospitalization, Other)
  Sender: FDA-Public Use
  Company Number: None

PATIENT
  Sex: Female
  Weight: 55 kg

DRUGS (9)
  1. CETUXIMAB [Suspect]
     Indication: COLON CANCER
     Dosage: SEE IMAGE
     Route: 042
     Dates: start: 20051107, end: 20051107
  2. CETUXIMAB [Suspect]
     Dosage: SEE IMAGE
     Route: 042
     Dates: start: 20051107
  3. BEVACIZUMAB [Suspect]
     Dosage: SEE IMAGE
     Route: 042
  4. OXALIPLATIN [Suspect]
     Dosage: SEE IMAGE
     Route: 042
  5. LEUCOVORIN [Suspect]
     Dosage: SEE IMAGE
     Route: 042
  6. FLUOROURACIL [Suspect]
     Dosage: SEE IMAGE
     Route: 042
  7. FLUOROURACIL [Suspect]
     Dosage: SEE IMAGE
     Route: 042
  8. LIPITOR [Concomitant]
  9. LORATADINE [Concomitant]

REACTIONS (3)
  - DRUG HYPERSENSITIVITY [None]
  - FLUSHING [None]
  - HYPOTENSION [None]
